FAERS Safety Report 21588216 (Version 1)
Quarter: 2022Q4

REPORT INFORMATION
  Report Type: Spontaneous
  Country: US (occurrence: US)
  Receive Date: 20221114
  Receipt Date: 20221114
  Transmission Date: 20230113
  Serious: Yes (Other)
  Sender: FDA-Public Use
  Company Number: US-SA-2022SA456840

PATIENT
  Sex: Female

DRUGS (3)
  1. MULTAQ [Suspect]
     Active Substance: DRONEDARONE
     Indication: Product used for unknown indication
     Route: 065
  2. IMBRUVICA [Suspect]
     Active Substance: IBRUTINIB
     Indication: Chronic lymphocytic leukaemia (in remission)
     Dosage: 140 MG MISSED TWO DOSES, EVERY 1 DAYS
     Route: 048
     Dates: start: 201603
  3. IMBRUVICA [Suspect]
     Active Substance: IBRUTINIB
     Dosage: 140 MG, QD
     Route: 048
     Dates: start: 20160430

REACTIONS (19)
  - Haemorrhage [Unknown]
  - Atrial fibrillation [Unknown]
  - Pain [Unknown]
  - Red blood cell count decreased [Unknown]
  - Blood iron abnormal [Unknown]
  - Oral pain [Unknown]
  - Feeling abnormal [Unknown]
  - Swelling [Unknown]
  - Tension [Unknown]
  - Headache [Unknown]
  - Joint range of motion decreased [Unknown]
  - Weight decreased [Unknown]
  - Lymphocyte count abnormal [Unknown]
  - Gout [Unknown]
  - Gastric polyps [Unknown]
  - Muscle strain [Unknown]
  - Dry skin [Unknown]
  - Onychoclasis [Unknown]
  - Intentional product misuse [Unknown]

NARRATIVE: CASE EVENT DATE: 20210501
